FAERS Safety Report 5750316-1 (Version None)
Quarter: 2008Q2

REPORT INFORMATION
  Report Type: 
  Country: None (occurrence: None)
  Receive Date: 20080521
  Receipt Date: 20080521
  Transmission Date: 20081010
  Serious: Yes (Other)
  Sender: FDA-Public Use
  Company Number: None

PATIENT
  Age: 9 Year
  Sex: Male
  Weight: 44.4525 kg

DRUGS (1)
  1. SINGULAIR [Suspect]
     Indication: ASTHMA
     Dosage: 5MG Q HS PO
     Route: 048
     Dates: start: 20061030, end: 20080519

REACTIONS (3)
  - DEPRESSION [None]
  - FATIGUE [None]
  - POOR QUALITY SLEEP [None]
